FAERS Safety Report 13401978 (Version 4)
Quarter: 2018Q1

REPORT INFORMATION
  Report Type: Spontaneous
  Country: IT (occurrence: IT)
  Receive Date: 20170404
  Receipt Date: 20180220
  Transmission Date: 20180508
  Serious: Yes (Hospitalization)
  Sender: FDA-Public Use
  Company Number: IT-JNJFOC-20170329486

PATIENT
  Age: 42 Year
  Sex: Female
  Weight: 78 kg

DRUGS (9)
  1. RISPERDAL [Suspect]
     Active Substance: RISPERIDONE
     Indication: BIPOLAR DISORDER
     Route: 048
     Dates: start: 20170301
  2. XENAZINA [Suspect]
     Active Substance: TETRABENAZINE
     Indication: PRODUCT USED FOR UNKNOWN INDICATION
     Route: 048
  3. DEPAKIN [Suspect]
     Active Substance: VALPROATE SODIUM
     Indication: BIPOLAR DISORDER
     Route: 048
  4. DEPAKIN [Suspect]
     Active Substance: VALPROATE SODIUM
     Indication: BIPOLAR DISORDER
     Route: 048
     Dates: start: 20170301
  5. RISPERDAL [Suspect]
     Active Substance: RISPERIDONE
     Indication: BIPOLAR DISORDER
     Route: 048
     Dates: start: 20170213, end: 20170225
  6. LEPONEX [Suspect]
     Active Substance: CLOZAPINE
     Indication: BIPOLAR DISORDER
     Route: 048
  7. EN [Suspect]
     Active Substance: DELORAZEPAM
     Indication: BIPOLAR DISORDER
     Route: 048
  8. EN [Suspect]
     Active Substance: DELORAZEPAM
     Indication: BIPOLAR DISORDER
     Route: 048
  9. DEPAKIN [Suspect]
     Active Substance: VALPROATE SODIUM
     Indication: BIPOLAR DISORDER
     Route: 048

REACTIONS (12)
  - Hypothermia [Recovered/Resolved]
  - Gait disturbance [Unknown]
  - Coma [Recovered/Resolved]
  - Pancreatitis acute [Recovered/Resolved]
  - Contusion [Recovering/Resolving]
  - Asthenia [Unknown]
  - Acute kidney injury [Recovered/Resolved]
  - Syncope [Unknown]
  - Nervous system disorder [Unknown]
  - Fall [Unknown]
  - Sinus bradycardia [Recovered/Resolved]
  - Limb injury [Recovering/Resolving]

NARRATIVE: CASE EVENT DATE: 20170225
